FAERS Safety Report 5824417-3 (Version None)
Quarter: 2008Q3

REPORT INFORMATION
  Report Type: 
  Country: None (occurrence: None)
  Receive Date: 20080728
  Receipt Date: 20080724
  Transmission Date: 20090109
  Serious: Yes (Other)
  Sender: FDA-Public Use
  Company Number: B0361630A

PATIENT
  Age: 42 Year
  Sex: Female

DRUGS (2)
  1. SEROXAT [Suspect]
     Indication: ANXIETY
     Route: 048
     Dates: start: 19961218
  2. SEROXAT [Suspect]

REACTIONS (20)
  - ABORTION MISSED [None]
  - AGITATION [None]
  - ANOREXIA [None]
  - ANXIETY [None]
  - CRYING [None]
  - DIARRHOEA [None]
  - DIZZINESS [None]
  - HEADACHE [None]
  - INSOMNIA [None]
  - IRRITABLE BOWEL SYNDROME [None]
  - MYALGIA [None]
  - NAUSEA [None]
  - PALPITATIONS [None]
  - PANIC ATTACK [None]
  - PARAESTHESIA [None]
  - TEARFULNESS [None]
  - VERTIGO [None]
  - VOMITING [None]
  - WEIGHT DECREASED [None]
  - WITHDRAWAL SYNDROME [None]
